FAERS Safety Report 10286402 (Version 2)
Quarter: 2014Q3

REPORT INFORMATION
  Report Type: Spontaneous
  Country: US (occurrence: US)
  Receive Date: 20140709
  Receipt Date: 20140715
  Transmission Date: 20150326
  Serious: No
  Sender: FDA-Public Use
  Company Number: US-PFIZER INC-2014188531

PATIENT
  Age: 59 Year
  Sex: Female
  Weight: 62.13 kg

DRUGS (1)
  1. ESTRING [Suspect]
     Active Substance: ESTRADIOL
     Indication: VULVOVAGINAL DRYNESS
     Dosage: 2 MG, UNK
     Route: 067
     Dates: start: 20140620, end: 20140620

REACTIONS (5)
  - Vulvovaginal discomfort [Unknown]
  - Product quality issue [Unknown]
  - Abdominal pain upper [Unknown]
  - Gait disturbance [Unknown]
  - Vulvovaginal pain [Unknown]

NARRATIVE: CASE EVENT DATE: 20140620
